FAERS Safety Report 13128886 (Version 1)
Quarter: 2017Q1

REPORT INFORMATION
  Report Type: Spontaneous
  Country: US (occurrence: US)
  Receive Date: 20170118
  Receipt Date: 20170118
  Transmission Date: 20170428
  Serious: Yes (Death)
  Sender: FDA-Public Use
  Company Number: None

PATIENT
  Sex: Male

DRUGS (3)
  1. ASPIRIN. [Suspect]
     Active Substance: ASPIRIN
  2. STENT DEVICE [Suspect]
     Active Substance: DEVICE
  3. GENERIC PLAVIX [Suspect]
     Active Substance: CLOPIDOGREL BISULFATE

REACTIONS (4)
  - Off label use [None]
  - Pain in extremity [None]
  - Haemorrhage [None]
  - Nausea [None]

NARRATIVE: CASE EVENT DATE: 201501
